FAERS Safety Report 14284495 (Version 2)
Quarter: 2018Q1

REPORT INFORMATION
  Report Type: Report from Study
  Country: US (occurrence: US)
  Receive Date: 20171214
  Receipt Date: 20180119
  Transmission Date: 20180509
  Serious: Yes (Death, Other)
  Sender: FDA-Public Use
  Company Number: US-AMGEN-USASL2017183973

PATIENT
  Age: 71 Year
  Sex: Male
  Weight: 54.42 kg

DRUGS (12)
  1. TAMSULOSIN HYDROCHLORIDE. [Concomitant]
     Active Substance: TAMSULOSIN HYDROCHLORIDE
     Dosage: 0.4 MG, QD
     Route: 048
  2. VIAGRA [Concomitant]
     Active Substance: SILDENAFIL CITRATE
  3. AMBIEN [Concomitant]
     Active Substance: ZOLPIDEM TARTRATE
     Dosage: 10 MG, QD
     Route: 048
  4. ATORVASTATIN CALCIUM. [Concomitant]
     Active Substance: ATORVASTATIN CALCIUM
     Dosage: 40 MG, QD
     Route: 048
  5. TRAMADOL HYDROCHLORIDE. [Concomitant]
     Active Substance: TRAMADOL HYDROCHLORIDE
     Dosage: 50 MG, BID
     Route: 048
  6. PROLIA [Suspect]
     Active Substance: DENOSUMAB
     Indication: PRODUCT USED FOR UNKNOWN INDICATION
     Dosage: 60 MG, UNK
     Route: 065
     Dates: start: 20150216
  7. CYCLOBENZAPRINE HYDROCHLORIDE. [Concomitant]
     Active Substance: CYCLOBENZAPRINE HYDROCHLORIDE
     Dosage: 10 MG, QD
     Route: 048
  8. AMLODIPINE [Concomitant]
     Active Substance: AMLODIPINE BESYLATE
     Dosage: 5 MG, QD
     Route: 048
  9. AMBIEN [Concomitant]
     Active Substance: ZOLPIDEM TARTRATE
     Dosage: 5 MG, QD
     Route: 048
  10. MORPHINE SULFATE. [Concomitant]
     Active Substance: MORPHINE SULFATE
     Dosage: 15 MG, Q12H (EXTENDED RELEASE, THREE TIMES A DAY)
     Route: 048
  11. OXYCODONE HYDROCHLORIDE. [Concomitant]
     Active Substance: OXYCODONE HYDROCHLORIDE
     Dosage: 5 MG, EVERY 4 TO 6 HOURS
     Route: 048
  12. PLAVIX [Concomitant]
     Active Substance: CLOPIDOGREL BISULFATE
     Dosage: 75 MG, QD
     Route: 048

REACTIONS (16)
  - Hot flush [Unknown]
  - Fall [Not Recovered/Not Resolved]
  - Hypertonic bladder [Unknown]
  - Urinary retention [Recovered/Resolved]
  - Cyst [Unknown]
  - Nocturia [Unknown]
  - Fatigue [Unknown]
  - Neoplasm malignant [Unknown]
  - Anxiety [Unknown]
  - Urinary incontinence [Recovering/Resolving]
  - Death [Fatal]
  - Rib fracture [Unknown]
  - Balance disorder [Not Recovered/Not Resolved]
  - Insomnia [Unknown]
  - Back pain [Unknown]
  - Musculoskeletal pain [Not Recovered/Not Resolved]

NARRATIVE: CASE EVENT DATE: 20151111
